FAERS Safety Report 5651850-5 (Version None)
Quarter: 2008Q1

REPORT INFORMATION
  Report Type: 
  Country: None (occurrence: None)
  Receive Date: 20080305
  Receipt Date: 20080222
  Transmission Date: 20080703
  Serious: Yes (Death)
  Sender: FDA-Public Use
  Company Number: L08-USA-00315-15

PATIENT
  Age: 58 Year
  Sex: Male

DRUGS (5)
  1. ESCITALOPRAM OXALATE [Suspect]
  2. ZOLPIDEM [Suspect]
  3. CARBON MONOXIDE [Suspect]
  4. ALPRAZOLAM [Suspect]
  5. ESTROGENIC SUBSTANCE CAP [Suspect]

REACTIONS (2)
  - COMPLETED SUICIDE [None]
  - MULTIPLE DRUG OVERDOSE [None]
